FAERS Safety Report 9301790 (Version 1)
Quarter: 2013Q2

REPORT INFORMATION
  Report Type: Spontaneous
  Country: US (occurrence: US)
  Receive Date: 20130521
  Receipt Date: 20130521
  Transmission Date: 20140414
  Serious: No
  Sender: FDA-Public Use
  Company Number: US-TEVA-339730USA

PATIENT
  Age: 40 Year
  Sex: Female

DRUGS (3)
  1. FENTORA [Suspect]
     Dosage: BID
     Route: 002
     Dates: start: 201204
  2. FENTANYL [Suspect]
     Dosage: EVERY 72 HOURS
     Route: 060
  3. NON-PROSTRAKAN PRODUCT [Suspect]
     Dosage: 200MCG
     Dates: start: 201204

REACTIONS (5)
  - Stomatitis [Not Recovered/Not Resolved]
  - Breakthrough pain [Recovered/Resolved]
  - Off label use [Unknown]
  - Expired drug administered [Unknown]
  - Drug dispensing error [Unknown]
